FAERS Safety Report 20844735 (Version 1)
Quarter: 2022Q2

REPORT INFORMATION
  Report Type: Spontaneous
  Country: US (occurrence: US)
  Receive Date: 20220518
  Receipt Date: 20220518
  Transmission Date: 20220721
  Serious: No
  Sender: FDA-Public Use
  Company Number: US-PFIZER INC-202200690137

PATIENT
  Age: 56 Year
  Sex: Male

DRUGS (1)
  1. RETACRIT [Suspect]
     Active Substance: EPOETIN ALFA-EPBX
     Indication: Refractory cytopenia with unilineage dysplasia
     Dosage: 40000 IU

REACTIONS (2)
  - Illness [Unknown]
  - Off label use [Unknown]
